FAERS Safety Report 6638192-6 (Version None)
Quarter: 2010Q1

REPORT INFORMATION
  Report Type: 
  Country: None (occurrence: None)
  Receive Date: 20100315
  Receipt Date: 20100315
  Transmission Date: 20100710
  Serious: Yes (Hospitalization)
  Sender: FDA-Public Use
  Company Number: None

PATIENT
  Age: 65 Year
  Sex: Female
  Weight: 60.78 kg

DRUGS (5)
  1. DIVALPROEX SODIUM EXTENDED RELEASE [Suspect]
     Indication: BREAST CANCER
     Dosage: 60MG/KG, BID + ORALLY; 500 MG/M2
     Route: 048
     Dates: start: 20100215, end: 20100217
  2. DIVALPROEX SODIUM EXTENDED RELEASE [Suspect]
     Indication: BREAST CANCER
     Dosage: 60MG/KG, BID + ORALLY; 500 MG/M2
     Route: 048
     Dates: start: 20100217
  3. FLUOROURACIL [Suspect]
     Dosage: 500 MG/M2
     Dates: start: 20100217
  4. CYTOXAN [Suspect]
     Indication: BREAST CANCER
     Dosage: 100 MG/M2
     Dates: start: 20100217
  5. .. [Concomitant]

REACTIONS (4)
  - BREAST MASS [None]
  - FEBRILE NEUTROPENIA [None]
  - MOTOR DYSFUNCTION [None]
  - ULCER [None]
